FAERS Safety Report 13269298 (Version 1)
Quarter: 2017Q1

REPORT INFORMATION
  Report Type: Spontaneous
  Country: FR (occurrence: FR)
  Receive Date: 20170224
  Receipt Date: 20170224
  Transmission Date: 20170428
  Serious: Yes (Hospitalization)
  Sender: FDA-Public Use
  Company Number: FR-ASTRAZENECA-2017SE19167

PATIENT
  Age: 82 Year
  Sex: Female

DRUGS (12)
  1. LOGIMAX [Concomitant]
     Active Substance: FELODIPINE\METOPROLOL SUCCINATE
  2. DEBRIDAT [Concomitant]
     Active Substance: TRIMEBUTINE MALEATE
  3. DAFLON [Concomitant]
     Active Substance: DIOSMIN\HESPERIDIN
  4. METEOXANE [Concomitant]
     Active Substance: AMOBARBITAL\BELLADONNA LEAF\DIMETHICONE\ERGOTAMINE TARTRATE
  5. ZOPICLONE [Concomitant]
     Active Substance: ZOPICLONE
  6. LACTULOSE. [Concomitant]
     Active Substance: LACTULOSE
  7. DOLIPRANE [Concomitant]
     Active Substance: ACETAMINOPHEN
  8. XEROQUEL [Suspect]
     Active Substance: QUETIAPINE FUMARATE
     Route: 048
     Dates: start: 201701, end: 20170203
  9. REMINYL SR [Concomitant]
  10. CRESTOR [Concomitant]
     Active Substance: ROSUVASTATIN CALCIUM
  11. LEVOTHYROX [Concomitant]
     Active Substance: LEVOTHYROXINE
  12. TARDYFERON [Concomitant]
     Active Substance: FERROUS SULFATE

REACTIONS (2)
  - Abnormal behaviour [Recovered/Resolved]
  - Liver disorder [Unknown]

NARRATIVE: CASE EVENT DATE: 20170202
